FAERS Safety Report 8171570-5 (Version None)
Quarter: 2012Q1

REPORT INFORMATION
  Report Type: 
  Country: None (occurrence: None)
  Receive Date: 20120113
  Receipt Date: 20111202
  Transmission Date: 20120608
  Serious: No
  Sender: FDA-Public Use
  Company Number: PHEH2011US011105

PATIENT
  Sex: Female
  Weight: 61.5 kg

DRUGS (17)
  1. WELCHOL [Concomitant]
  2. LASIX [Concomitant]
  3. COENZYME A (COENZYME A) [Concomitant]
  4. ILARIS [Suspect]
     Indication: CRYOPYRIN ASSOCIATED PERIODIC SYNDROME
     Dosage: 180 MG, ONCE IN 8 WEEKS, SUBCUTANEOUS
     Route: 058
  5. LIPITOR [Concomitant]
  6. CALTRATE PLUS (CALCIUM, COLECALCIFEROL, COPPER, MAGNESIUM, MANGANESE, [Concomitant]
  7. TRICOR [Concomitant]
  8. HYZAAR [Concomitant]
  9. ERGOCALCIFEROL [Concomitant]
  10. SYNTHROID [Concomitant]
  11. COREG [Concomitant]
  12. METROCREAM [Concomitant]
  13. NORVASC [Concomitant]
  14. COUMADIN [Concomitant]
  15. PREDNISONE TAB [Concomitant]
  16. LAMISIL [Concomitant]
  17. COENZYME A (COENZYME A) [Concomitant]

REACTIONS (1)
  - ARTHRALGIA [None]
